FAERS Safety Report 17463268 (Version 1)
Quarter: 2020Q1

REPORT INFORMATION
  Report Type: Spontaneous
  Country: US (occurrence: US)
  Receive Date: 20200213
  Receipt Date: 20200213
  Transmission Date: 20200409
  Serious: Yes (Hospitalization)
  Sender: FDA-Public Use
  Company Number: None

PATIENT
  Age: 73 Year
  Sex: Male

DRUGS (1)
  1. DAPTOMYCIN (DAPTOMYCIN 250MG/VIL INJ) [Suspect]
     Active Substance: DAPTOMYCIN
     Dosage: ?          OTHER STRENGTH:250 MG/VIL;?
     Dates: start: 20191209, end: 20200108

REACTIONS (2)
  - Lung infiltration [None]
  - Eosinophilic pneumonia [None]

NARRATIVE: CASE EVENT DATE: 20200109
